FAERS Safety Report 15134045 (Version 1)
Quarter: 2018Q3

REPORT INFORMATION
  Report Type: Spontaneous
  Country: PL (occurrence: PL)
  Receive Date: 20180712
  Receipt Date: 20180712
  Transmission Date: 20181010
  Serious: Yes (Hospitalization, Other)
  Sender: FDA-Public Use
  Company Number: PHHY2018PL037866

PATIENT
  Age: 44 Year
  Sex: Female

DRUGS (3)
  1. ARECHIN [Concomitant]
     Active Substance: CHLOROQUINE PHOSPHATE
     Indication: LUPUS NEPHRITIS
     Dosage: UNK
     Route: 065
  2. PREDNISONE. [Suspect]
     Active Substance: PREDNISONE
     Indication: LUPUS NEPHRITIS
     Dosage: 40 MG, QD
     Route: 048
  3. MYCOPHENOLATE MOFETIL. [Suspect]
     Active Substance: MYCOPHENOLATE MOFETIL
     Indication: LUPUS NEPHRITIS
     Dosage: 2 G, QD
     Route: 065

REACTIONS (5)
  - Product use in unapproved indication [Unknown]
  - Varicella zoster virus infection [Unknown]
  - Visual impairment [Unknown]
  - Central nervous system lymphoma [Unknown]
  - Necrotising herpetic retinopathy [Unknown]
